FAERS Safety Report 4866926-X (Version None)
Quarter: 2005Q4

REPORT INFORMATION
  Report Type: 
  Country: None (occurrence: None)
  Receive Date: 20051222
  Receipt Date: 20051214
  Transmission Date: 20060501
  Serious: Yes (Death)
  Sender: FDA-Public Use
  Company Number: 2005158803

PATIENT
  Age: 66 Year
  Sex: Female

DRUGS (5)
  1. VFEND [Suspect]
     Indication: FUNGAEMIA
     Dosage: 360 MG, INTRAVENOUS
     Route: 042
     Dates: start: 20051028
  2. SOLU-MEDROL [Suspect]
     Indication: SHOCK
     Dosage: 500 MG, INTRAVENOUS
     Route: 042
     Dates: start: 20051028
  3. COTRIM [Suspect]
     Indication: ILL-DEFINED DISORDER
     Dosage: ORAL
  4. CIPROFLOXACIN HYDROCHLORIDE [Concomitant]
  5. GANCICLOVIR SODIUM [Concomitant]

REACTIONS (4)
  - ALANINE AMINOTRANSFERASE INCREASED [None]
  - ASPARTATE AMINOTRANSFERASE INCREASED [None]
  - HEPATIC FUNCTION ABNORMAL [None]
  - PNEUMONIA [None]
